FAERS Safety Report 21241181 (Version 1)
Quarter: 2022Q3

REPORT INFORMATION
  Report Type: Spontaneous
  Country: US (occurrence: US)
  Receive Date: 20220823
  Receipt Date: 20220823
  Transmission Date: 20221026
  Serious: Yes (Hospitalization, Other)
  Sender: FDA-Public Use
  Company Number: US-SUN PHARMACEUTICAL INDUSTRIES LTD-2022R1-349504

PATIENT
  Age: 64 Year
  Sex: Male

DRUGS (2)
  1. DOXORUBICIN [Suspect]
     Active Substance: DOXORUBICIN
     Indication: Chemotherapy
     Dosage: 25 MILLIGRAM/SQ. METER/OVER 4 HOURS ON DAYS 1
     Route: 065
  2. CISPLATIN [Suspect]
     Active Substance: CISPLATIN
     Indication: Chemotherapy
     Dosage: 100 MILLIGRAM/SQ. METER/OVER 2 HOURS ON DAY 1
     Route: 065

REACTIONS (4)
  - Hypervolaemia [Unknown]
  - Hypotension [Unknown]
  - Bacteraemia [Unknown]
  - Acute kidney injury [Unknown]
